APPROVED DRUG PRODUCT: FELBATOL
Active Ingredient: FELBAMATE
Strength: 600MG
Dosage Form/Route: TABLET;ORAL
Application: N020189 | Product #002 | TE Code: AB
Applicant: MYLAN SPECIALTY LP
Approved: Jul 29, 1993 | RLD: Yes | RS: Yes | Type: RX